FAERS Safety Report 24032560 (Version 1)
Quarter: 2024Q3

REPORT INFORMATION
  Report Type: Spontaneous
  Country: US (occurrence: US)
  Receive Date: 20240701
  Receipt Date: 20240701
  Transmission Date: 20241016
  Serious: No
  Sender: AMGEN
  Company Number: US-AMGEN-USASP2024125603

PATIENT
  Age: 64 Year
  Sex: Female
  Weight: 112.1 kg

DRUGS (3)
  1. KYPROLIS [Suspect]
     Active Substance: CARFILZOMIB
     Indication: Plasma cell myeloma
     Dosage: 154 MILLIGRAM (60MG VIAL)
     Route: 065
     Dates: start: 20240412
  2. KYPROLIS [Suspect]
     Active Substance: CARFILZOMIB
     Dosage: 154 MILLIGRAM (30MG VIAL )
     Route: 065
  3. KYPROLIS [Suspect]
     Active Substance: CARFILZOMIB
     Dosage: 154 MILLIGRAM (10MG VIAL )
     Route: 065

REACTIONS (1)
  - Malaise [Unknown]

NARRATIVE: CASE EVENT DATE: 20240621
